FAERS Safety Report 7583302-X (Version None)
Quarter: 2011Q2

REPORT INFORMATION
  Report Type: 
  Country: None (occurrence: None)
  Receive Date: 20110627
  Receipt Date: 20110627
  Transmission Date: 20111010
  Serious: Yes (Life-Threatening, Hospitalization, Disabling, Other)
  Sender: FDA-Public Use
  Company Number: None

PATIENT
  Age: 83 Year
  Sex: Male
  Weight: 70.7611 kg

DRUGS (2)
  1. CIPROFLOXACIN [Suspect]
     Indication: COLITIS
     Dates: start: 20090203, end: 20090207
  2. FLAGYL I.V. [Suspect]
     Indication: COLITIS
     Dates: start: 20090203, end: 20090206

REACTIONS (1)
  - STEVENS-JOHNSON SYNDROME [None]
